FAERS Safety Report 8459890-8 (Version None)
Quarter: 2012Q2

REPORT INFORMATION
  Report Type: 
  Country: None (occurrence: None)
  Receive Date: 20120622
  Receipt Date: 20120619
  Transmission Date: 20120825
  Serious: Yes (Other)
  Sender: FDA-Public Use
  Company Number: PHEH2012US011899

PATIENT
  Sex: Male

DRUGS (3)
  1. GILENYA [Suspect]
     Dosage: 0.5 MG, QD
     Route: 048
     Dates: start: 20111201
  2. GILENYA [Suspect]
     Indication: MULTIPLE SCLEROSIS
     Dosage: 0.5 MG, QD
     Route: 048
     Dates: start: 20111231
  3. FAMPRIDINE [Concomitant]
     Dosage: 10 MG, BID

REACTIONS (6)
  - HYPERTENSION [None]
  - HEADACHE [None]
  - VISUAL FIELD DEFECT [None]
  - COUGH [None]
  - VISION BLURRED [None]
  - BACK PAIN [None]
